FAERS Safety Report 12642671 (Version 2)
Quarter: 2016Q4

REPORT INFORMATION
  Report Type: Spontaneous
  Country: US (occurrence: US)
  Receive Date: 20160810
  Receipt Date: 20161024
  Transmission Date: 20170207
  Serious: No
  Sender: FDA-Public Use
  Company Number: US-ASTRAZENECA-2016SE81347

PATIENT
  Sex: Female

DRUGS (1)
  1. SYMBICORT [Suspect]
     Active Substance: BUDESONIDE\FORMOTEROL FUMARATE DIHYDRATE
     Dosage: 160/4.5 MCG 120 INHALATIONS, TWO PUFFS TWICE PER DAY
     Route: 055
     Dates: start: 20160702

REACTIONS (4)
  - Product quality issue [Unknown]
  - Drug effect increased [Unknown]
  - Cough [Unknown]
  - Intentional product misuse [Unknown]
